FAERS Safety Report 5315561-8 (Version None)
Quarter: 2007Q2

REPORT INFORMATION
  Report Type: 
  Country: None (occurrence: None)
  Receive Date: 20070503
  Receipt Date: 20070423
  Transmission Date: 20071010
  Serious: Yes (Hospitalization, Other)
  Sender: FDA-Public Use
  Company Number: 2007UW08036

PATIENT
  Age: 59 Year
  Sex: Female

DRUGS (2)
  1. ATACAND [Suspect]
     Indication: HYPERTENSION
     Dosage: } 2 YEARS
     Route: 048
  2. ATENSINA [Concomitant]
     Indication: HYPERTENSION
     Dosage: }2 YEARS
     Route: 048

REACTIONS (2)
  - FOOT FRACTURE [None]
  - ROAD TRAFFIC ACCIDENT [None]
